FAERS Safety Report 5142784-3 (Version None)
Quarter: 2006Q4

REPORT INFORMATION
  Report Type: 
  Country: None (occurrence: None)
  Receive Date: 20061027
  Receipt Date: 20061010
  Transmission Date: 20070319
  Serious: Yes (Hospitalization, Other)
  Sender: FDA-Public Use
  Company Number: US200608003471

PATIENT
  Age: 75 Year
  Sex: Female

DRUGS (2)
  1. EVISTA [Suspect]
     Indication: OSTEOPOROSIS
     Dosage: 60 MG, DAILY (1/D), ORAL
     Route: 048
     Dates: start: 20000101, end: 20040401
  2. FOSAMAX /ITA/ (ALENDRONATE SODIUM) [Concomitant]

REACTIONS (4)
  - LIPIDS ABNORMAL [None]
  - LOW DENSITY LIPOPROTEIN INCREASED [None]
  - THROMBOSIS [None]
  - TRANSIENT ISCHAEMIC ATTACK [None]
